FAERS Safety Report 21684047 (Version 1)
Quarter: 2022Q4

REPORT INFORMATION
  Report Type: Spontaneous
  Country: US (occurrence: US)
  Receive Date: 20221205
  Receipt Date: 20221205
  Transmission Date: 20230112
  Serious: Yes (Other)
  Sender: FDA-Public Use
  Company Number: US-PFIZER INC-202201342792

PATIENT
  Age: 52 Year
  Sex: Female
  Weight: 54.43 kg

DRUGS (1)
  1. PAXLOVID [Suspect]
     Active Substance: NIRMATRELVIR\RITONAVIR
     Indication: COVID-19 treatment
     Dosage: 3 DF, 2X/DAY (300MG/100MG DOSE PACK; THREE TABLETS EVERY 12 HOURS FOR FIVE DAYS)
     Dates: start: 20221129

REACTIONS (4)
  - Chromaturia [Unknown]
  - Yellow skin [Unknown]
  - Nasal congestion [Unknown]
  - Hypoacusis [Unknown]

NARRATIVE: CASE EVENT DATE: 20221130
